FAERS Safety Report 7564196-5 (Version None)
Quarter: 2011Q2

REPORT INFORMATION
  Report Type: 
  Country: None (occurrence: None)
  Receive Date: 20110622
  Receipt Date: 20110608
  Transmission Date: 20111010
  Serious: Yes (Hospitalization, Other)
  Sender: FDA-Public Use
  Company Number: PHHY2011US50755

PATIENT
  Sex: Female

DRUGS (18)
  1. LEVOTHYROXINE SODIUM [Concomitant]
     Dosage: 0.25 MG, UNK
  2. FLAXSEED OIL [Concomitant]
  3. EVISTA [Concomitant]
     Dosage: 60 MG, QD
  4. DIOVAN [Suspect]
     Dosage: LOW DOSE
  5. VITAMIN TAB [Concomitant]
  6. CALCIUM CARBONATE [Concomitant]
     Dosage: 500 MG, UNK
  7. METOPROLOL TARTRATE [Concomitant]
     Dosage: 12.5 MG, UNK
  8. TAXTERE CHEMOTHERAPY [Concomitant]
  9. VITAMIN D [Concomitant]
     Dosage: 400 IU, TID
  10. VALTURNA [Suspect]
  11. VALTURNA [Suspect]
     Dates: start: 20110529, end: 20110601
  12. THERAGRAN-M [Concomitant]
  13. KLOR-CON [Concomitant]
     Dosage: 10 MEQ, TID
  14. ASPIRIN [Concomitant]
     Dosage: 81 MG, UNK
  15. METOPROLOL TARTRATE [Concomitant]
     Dosage: 25 MG, DAILY
  16. DIOVAN [Suspect]
     Dosage: 320 MG, QD
  17. CHEMOTHERAPY [Concomitant]
  18. OMEPRAZOLE [Concomitant]
     Dosage: 40 MG, BID

REACTIONS (7)
  - BLOOD PRESSURE SYSTOLIC INCREASED [None]
  - BLOOD PRESSURE INADEQUATELY CONTROLLED [None]
  - PAIN IN JAW [None]
  - BREAST CANCER RECURRENT [None]
  - HEART RATE INCREASED [None]
  - MUSCULOSKELETAL PAIN [None]
  - HYPOTENSION [None]
